FAERS Safety Report 11220853 (Version 2)
Quarter: 2015Q3

REPORT INFORMATION
  Report Type: Report from Study
  Country: MX (occurrence: MX)
  Receive Date: 20150626
  Receipt Date: 20150730
  Transmission Date: 20151125
  Serious: Yes (Life-Threatening, Other)
  Sender: FDA-Public Use
  Company Number: MX-AMGEN-MEXCT2014074910

PATIENT
  Age: 67 Year
  Sex: Female

DRUGS (23)
  1. HYDROXYCHLOROQUINE [Concomitant]
     Active Substance: HYDROXYCHLOROQUINE
     Dosage: 200 MG, 1X/DAY
     Route: 048
     Dates: start: 20140211, end: 20140908
  2. OMEPRAZOLE. [Concomitant]
     Active Substance: OMEPRAZOLE
     Indication: PROPHYLAXIS
     Dosage: 20 MG, 1X/DAY
     Route: 048
     Dates: start: 20130503, end: 20131112
  3. OMEPRAZOLE. [Concomitant]
     Active Substance: OMEPRAZOLE
     Dosage: 20 MG, 1X/DAY
     Route: 048
     Dates: start: 20140125, end: 20140212
  4. OMEPRAZOLE. [Concomitant]
     Active Substance: OMEPRAZOLE
     Dosage: 20MG EVERY DAY
     Route: 048
     Dates: start: 20140918
  5. FOLIC ACID. [Concomitant]
     Active Substance: FOLIC ACID
     Indication: PROPHYLAXIS
     Dosage: 5 MG, 1X/DAY
     Route: 048
     Dates: start: 20091007, end: 20140211
  6. ATORVASTATIN [Concomitant]
     Active Substance: ATORVASTATIN
     Indication: HYPERCHOLESTEROLAEMIA
     Dosage: 20 MG, 1X/DAY
     Route: 048
     Dates: start: 20131112, end: 20140113
  7. FOLIC ACID. [Concomitant]
     Active Substance: FOLIC ACID
     Dosage: 5 MG, 1X/DAY
     Route: 048
     Dates: start: 20140212, end: 20140908
  8. MELOXICAM. [Concomitant]
     Active Substance: MELOXICAM
     Indication: PAIN IN EXTREMITY
     Dosage: 10 MG, 2X/DAY (AS NEEDED)
     Route: 048
     Dates: start: 20141231
  9. METHOTREXATE [Concomitant]
     Active Substance: METHOTREXATE
     Indication: RHEUMATOID ARTHRITIS
     Dosage: 5 MG, 2X/WEEK
     Route: 048
     Dates: start: 20091007, end: 20130612
  10. HYDROXYCHLOROQUINE [Concomitant]
     Active Substance: HYDROXYCHLOROQUINE
     Indication: RHEUMATOID ARTHRITIS
     Dosage: 200 MG, 1X/DAY
     Route: 048
     Dates: start: 20091007, end: 20131112
  11. PREDNISONA [Concomitant]
     Active Substance: PREDNISONE
     Indication: RHEUMATOID ARTHRITIS
     Dosage: 5 MG, 1X/DAY
     Route: 048
     Dates: start: 20091007, end: 20140120
  12. OMEPRAZOLE. [Concomitant]
     Active Substance: OMEPRAZOLE
     Indication: HERPES ZOSTER
     Dosage: 20 MG, EVERY OTHER DAY
     Route: 048
     Dates: start: 20131113, end: 20140124
  13. MELOXICAM. [Concomitant]
     Active Substance: MELOXICAM
     Indication: RHEUMATOID ARTHRITIS
     Dosage: 30 MG, AS NEEDED
     Route: 048
     Dates: start: 20091007, end: 20140908
  14. LORATADIN [Concomitant]
     Active Substance: LORATADINE
     Indication: URTICARIA
     Dosage: 20 MG, AS NEEDED
     Route: 048
     Dates: start: 20131108, end: 20140530
  15. ETANERCEPT [Suspect]
     Active Substance: ETANERCEPT
     Indication: RHEUMATOID ARTHRITIS
     Dosage: 50 MG, WEEKLY(DATE OF THE LAST DOSE PRIOR TO SAE 02SEP2014)
     Route: 058
     Dates: end: 20140902
  16. HYDROXYCHLOROQUINE [Concomitant]
     Active Substance: HYDROXYCHLOROQUINE
     Dosage: 200 MUG, 1X/DAY
     Route: 048
     Dates: start: 20131113, end: 20140120
  17. ATORVASTATIN [Concomitant]
     Active Substance: ATORVASTATIN
     Dosage: 20 MG, ONE EVERY OTHER DAY
     Route: 048
     Dates: start: 20140723, end: 20140908
  18. METHOTREXATE [Concomitant]
     Active Substance: METHOTREXATE
     Dosage: 7.5 MG, 2X/WEEK
     Route: 048
     Dates: start: 20130613, end: 20140211
  19. MELOXICAM. [Concomitant]
     Active Substance: MELOXICAM
     Indication: PAIN IN EXTREMITY
     Dosage: 30 MG, 2X/DAY (AS NEEDED)
     Route: 048
     Dates: start: 20131123, end: 20140110
  20. ATORVASTATIN [Concomitant]
     Active Substance: ATORVASTATIN
     Dosage: 20 MUG, 1X/DAY
     Route: 048
     Dates: start: 20140114, end: 20140630
  21. ATORVASTATIN [Concomitant]
     Active Substance: ATORVASTATIN
     Dosage: 20 MG, 2X/WEEK
     Route: 048
     Dates: start: 20140701, end: 20140722
  22. TRAMADOL. [Concomitant]
     Active Substance: TRAMADOL
     Indication: POST HERPETIC NEURALGIA
     Dosage: 100 MG, AS NEEDED
     Route: 030
     Dates: start: 20141007, end: 20141230
  23. FENITON [Concomitant]
     Indication: POST HERPETIC NEURALGIA
     Dosage: 100 MG, 3X/DAY
     Route: 048
     Dates: start: 20141007, end: 20141230

REACTIONS (1)
  - Herpes zoster [Recovered/Resolved]

NARRATIVE: CASE EVENT DATE: 20140909
